FAERS Safety Report 4302416-0 (Version None)
Quarter: 2004Q1

REPORT INFORMATION
  Report Type: 
  Country: None (occurrence: None)
  Receive Date: 20040220
  Receipt Date: 20040213
  Transmission Date: 20041129
  Serious: Yes (Death, Hospitalization)
  Sender: FDA-Public Use
  Company Number: WAES0402USA01199

PATIENT
  Sex: Male

DRUGS (3)
  1. ZOCOR [Suspect]
     Indication: HYPERLIPIDAEMIA
     Dosage: 10 MG/DAILY, PO; 5 MG/DAILY, PO
     Route: 048
     Dates: start: 19920218, end: 19920101
  2. ZOCOR [Suspect]
     Indication: HYPERLIPIDAEMIA
     Dosage: 10 MG/DAILY, PO; 5 MG/DAILY, PO
     Route: 048
     Dates: start: 19940101, end: 19980310
  3. ZOCOR [Suspect]
     Indication: HYPERLIPIDAEMIA
     Dosage: 10 MG/DAILY, PO; 5 MG/DAILY, PO
     Route: 048
     Dates: start: 19920101

REACTIONS (5)
  - ANAEMIA [None]
  - HAEMATURIA [None]
  - PROSTATE CANCER [None]
  - RENAL FAILURE [None]
  - WEIGHT DECREASED [None]
